FAERS Safety Report 14761737 (Version 2)
Quarter: 2018Q2

REPORT INFORMATION
  Report Type: Spontaneous
  Country: US (occurrence: US)
  Receive Date: 20180416
  Receipt Date: 20180430
  Transmission Date: 20180711
  Serious: No
  Sender: FDA-Public Use
  Company Number: US-CELGENEUS-USA-20180404194

PATIENT
  Age: 20 Year
  Sex: Male

DRUGS (6)
  1. FLUOCINONIDE. [Concomitant]
     Active Substance: FLUOCINONIDE
     Indication: ECZEMA
     Route: 061
     Dates: start: 201109
  2. THALOMID [Suspect]
     Active Substance: THALIDOMIDE
     Indication: OFF LABEL USE
     Dosage: 100 MILLIGRAM
     Route: 048
     Dates: start: 201803
  3. THALOMID [Suspect]
     Active Substance: THALIDOMIDE
     Indication: ACTINIC PRURIGO
     Dosage: 100 MILLIGRAM
     Route: 048
     Dates: start: 20171005
  4. CLARITIN [Concomitant]
     Active Substance: LORATADINE
     Indication: RHINITIS ALLERGIC
     Route: 048
     Dates: start: 201410
  5. CLONIDINE. [Concomitant]
     Active Substance: CLONIDINE
     Indication: ATTENTION DEFICIT/HYPERACTIVITY DISORDER
     Route: 048
     Dates: start: 201109
  6. FLUTICASONE. [Concomitant]
     Active Substance: FLUTICASONE
     Indication: RHINITIS ALLERGIC
     Route: 045
     Dates: start: 201304

REACTIONS (1)
  - Allergic sinusitis [Recovered/Resolved]

NARRATIVE: CASE EVENT DATE: 20180316
